FAERS Safety Report 8350308 (Version 5)
Quarter: 2012Q4

REPORT INFORMATION
  Report Type: 
  Country: US (occurrence: US)
  Receive Date: 20120124
  Receipt Date: 20121130
  Transmission Date: 20130627
  Serious: Yes (Death, Hospitalization, Other)
  Sender: FDA-Public Use
  Company Number: US-PFIZER INC-2012013090

PATIENT
  Age: 83 Year
  Sex: Female

DRUGS (1)
  1. REVATIO [Suspect]
     Indication: PULMONARY HYPERTENSION
     Dosage: 20 mg, 3x/day
     Dates: start: 20100610

REACTIONS (4)
  - Myelodysplastic syndrome [Fatal]
  - Gallbladder disorder [Unknown]
  - Cholecystitis [Recovered/Resolved]
  - Rhinorrhoea [Unknown]
